FAERS Safety Report 22296571 (Version 1)
Quarter: 2023Q2

REPORT INFORMATION
  Report Type: Spontaneous
  Country: CA (occurrence: CA)
  Receive Date: 20230508
  Receipt Date: 20230508
  Transmission Date: 20230722
  Serious: Yes (Other)
  Sender: FDA-Public Use
  Company Number: CA-JNJFOC-20230510209

PATIENT
  Age: 31 Year
  Sex: Male
  Weight: 82 kg

DRUGS (14)
  1. REMICADE [Suspect]
     Active Substance: INFLIXIMAB
     Indication: Crohn^s disease
     Route: 041
  2. INFLIXIMAB [Suspect]
     Active Substance: INFLIXIMAB
     Indication: Crohn^s disease
     Route: 042
  3. INFLIXIMAB [Suspect]
     Active Substance: INFLIXIMAB
     Route: 042
  4. INFLIXIMAB [Suspect]
     Active Substance: INFLIXIMAB
     Route: 042
  5. INFLIXIMAB [Suspect]
     Active Substance: INFLIXIMAB
     Route: 042
  6. INFLIXIMAB [Suspect]
     Active Substance: INFLIXIMAB
     Route: 042
  7. INFLIXIMAB [Suspect]
     Active Substance: INFLIXIMAB
     Route: 042
  8. PREDNISONE [Concomitant]
     Active Substance: PREDNISONE
  9. TYLENOL [Concomitant]
     Active Substance: ACETAMINOPHEN
  10. ERGOCALCIFEROL [Concomitant]
     Active Substance: ERGOCALCIFEROL
  11. AZATHIOPRINE [Concomitant]
     Active Substance: AZATHIOPRINE
     Route: 048
  12. CALCIUM [Concomitant]
     Active Substance: CALCIUM
  13. CYANOCOBALAMIN [Concomitant]
     Active Substance: CYANOCOBALAMIN
  14. HYDROMORPHONE [Concomitant]
     Active Substance: HYDROMORPHONE

REACTIONS (21)
  - Abdominal distension [Not Recovered/Not Resolved]
  - Anal fistula [Not Recovered/Not Resolved]
  - Anal stenosis [Not Recovered/Not Resolved]
  - Weight decreased [Not Recovered/Not Resolved]
  - Heart rate increased [Not Recovered/Not Resolved]
  - Malaise [Not Recovered/Not Resolved]
  - Nervousness [Not Recovered/Not Resolved]
  - Platelet count increased [Not Recovered/Not Resolved]
  - Proctalgia [Not Recovered/Not Resolved]
  - Dehydration [Not Recovered/Not Resolved]
  - Pyrexia [Not Recovered/Not Resolved]
  - Red blood cell count decreased [Not Recovered/Not Resolved]
  - Nausea [Not Recovered/Not Resolved]
  - COVID-19 [Not Recovered/Not Resolved]
  - Headache [Not Recovered/Not Resolved]
  - Arthralgia [Not Recovered/Not Resolved]
  - Haemoglobin decreased [Not Recovered/Not Resolved]
  - Haematocrit decreased [Not Recovered/Not Resolved]
  - Condition aggravated [Not Recovered/Not Resolved]
  - Inappropriate schedule of product administration [Not Recovered/Not Resolved]
  - Off label use [Not Recovered/Not Resolved]
